FAERS Safety Report 9999065 (Version 1)
Quarter: 2014Q1

REPORT INFORMATION
  Report Type: Spontaneous
  Country: US (occurrence: None)
  Receive Date: 20140311
  Receipt Date: 20140311
  Transmission Date: 20141002
  Serious: Yes (Hospitalization, Disabling)
  Sender: FDA-Public Use
  Company Number: None

PATIENT
  Age: 48 Year
  Sex: Male
  Weight: 104.33 kg

DRUGS (1)
  1. PAROXETINE HCL, 20 MG, ZYDUS [Suspect]
     Indication: ANXIETY
     Dosage: TAKEN BY MOUTH

REACTIONS (6)
  - Product substitution issue [None]
  - Vertigo [None]
  - Impaired work ability [None]
  - Inner ear disorder [None]
  - Chest pain [None]
  - Muscular weakness [None]
